FAERS Safety Report 25456350 (Version 2)
Quarter: 2025Q4

REPORT INFORMATION
  Report Type: Report from Study
  Country: EG (occurrence: EG)
  Receive Date: 20250619
  Receipt Date: 20251020
  Transmission Date: 20260117
  Serious: Yes (Hospitalization)
  Sender: ABBVIE
  Company Number: EG-ABBVIE-6333097

PATIENT
  Age: 30 Year
  Sex: Male

DRUGS (1)
  1. HUMIRA [Suspect]
     Active Substance: ADALIMUMAB
     Indication: Crohn^s disease
     Dosage: 1 INJECTION; FORM STRENGTH: 40 MILLIGRAM
     Route: 058
     Dates: start: 20240804

REACTIONS (1)
  - Gastrectomy [Recovered/Resolved]

NARRATIVE: CASE EVENT DATE: 20241101
